FAERS Safety Report 25592255 (Version 1)
Quarter: 2025Q3

REPORT INFORMATION
  Report Type: Spontaneous
  Country: US (occurrence: None)
  Receive Date: 20250722
  Receipt Date: 20250722
  Transmission Date: 20251020
  Serious: No
  Sender: FDA-CTU
  Company Number: None

PATIENT
  Age: 49 Year
  Sex: Female
  Weight: 65.25 kg

DRUGS (1)
  1. OCTAGAM IMMUNE GLOBULIN (HUMAN) [Suspect]
     Active Substance: HUMAN IMMUNOGLOBULIN G
     Indication: Myelin oligodendrocyte glycoprotein antibody-associated disease
     Dates: start: 20250605, end: 20250605

REACTIONS (6)
  - Dyspnoea [None]
  - Cough [None]
  - Infusion related reaction [None]
  - Seizure [None]
  - Chest pain [None]
  - Hypersensitivity [None]

NARRATIVE: CASE EVENT DATE: 20250605
